FAERS Safety Report 16005958 (Version 1)
Quarter: 2019Q1

REPORT INFORMATION
  Report Type: Spontaneous
  Country: US (occurrence: US)
  Receive Date: 20190130
  Receipt Date: 20190130
  Transmission Date: 20190418
  Serious: Yes (Hospitalization)
  Sender: FDA-Public Use
  Company Number: None

PATIENT
  Age: 46 Year
  Sex: Female
  Weight: 77.5 kg

DRUGS (2)
  1. LINSINOPRIL-HCTZ [Concomitant]
     Active Substance: HYDROCHLOROTHIAZIDE\LISINOPRIL
  2. ASPIRIN. [Suspect]
     Active Substance: ASPIRIN
     Dates: end: 20190107

REACTIONS (4)
  - Hypotension [None]
  - Dysarthria [None]
  - Asthenia [None]
  - Gait disturbance [None]

NARRATIVE: CASE EVENT DATE: 20190107
